FAERS Safety Report 8844390 (Version 2)
Quarter: 2014Q4

REPORT INFORMATION
  Report Type: Spontaneous
  Country: DE (occurrence: DE)
  Receive Date: 20121017
  Receipt Date: 20141124
  Transmission Date: 20150529
  Serious: Yes (Other)
  Sender: FDA-Public Use
  Company Number: PHHY2012DE090913

PATIENT
  Age: 36 Year
  Sex: Female
  Weight: 87.98 kg

DRUGS (4)
  1. CO-DIOVAN [Suspect]
     Active Substance: HYDROCHLOROTHIAZIDE\VALSARTAN
     Indication: HYPERTENSION
     Dosage: UNK UKN, UNK
     Route: 048
     Dates: start: 20090924, end: 20100314
  2. THYROXIN [Concomitant]
     Active Substance: LEVOTHYROXINE
     Indication: HYPOTHYROIDISM
     Dosage: 50 UG, PER DAY
     Route: 048
     Dates: start: 20090924, end: 20100609
  3. PANDEMRIX [Concomitant]
     Active Substance: INFLUENZA VIRUS VACCINE, SWINE
     Indication: IMMUNISATION
     Dosage: UNK UKN, UNK
     Route: 030
     Dates: start: 20091105, end: 20091105
  4. METHYLDOPA. [Concomitant]
     Active Substance: METHYLDOPA
     Indication: HYPERTENSION
     Dosage: 250 MG, PER DAY
     Route: 048
     Dates: start: 20100314, end: 20100609

REACTIONS (3)
  - Oligohydramnios [Recovered/Resolved]
  - Premature labour [Unknown]
  - Exposure during pregnancy [Unknown]

NARRATIVE: CASE EVENT DATE: 20100609
